FAERS Safety Report 7745553-0 (Version None)
Quarter: 2011Q3

REPORT INFORMATION
  Report Type: 
  Country: None (occurrence: None)
  Receive Date: 20110829
  Receipt Date: 20110718
  Transmission Date: 20111222
  Serious: Yes (Death, Life-Threatening, Hospitalization)
  Sender: FDA-Public Use
  Company Number: WAES 1002ISR00006

PATIENT
  Age: 61 Year
  Sex: Male

DRUGS (6)
  1. ACETAMINOPHEN [Concomitant]
  2. CYANOCOBALAMIN (+) FOLIC ACID [Concomitant]
  3. DARBEPOETIN ALFA [Concomitant]
  4. IBUPROFEN [Concomitant]
  5. CAP VORINOSTAT [Suspect]
     Indication: MESOTHELIOMA
     Dosage: 300 MG/BID
     Route: 048
     Dates: start: 20100126, end: 20100128
  6. IRON (UNSPECIFIED) [Concomitant]

REACTIONS (1)
  - PLEURAL MESOTHELIOMA MALIGNANT ADVANCED [None]
